FAERS Safety Report 10462802 (Version 2)
Quarter: 2014Q3

REPORT INFORMATION
  Report Type: Spontaneous
  Country: TR (occurrence: TR)
  Receive Date: 20140918
  Receipt Date: 20140918
  Transmission Date: 20150326
  Serious: Yes (Other)
  Sender: FDA-Public Use
  Company Number: PHHY2014TR101846

PATIENT

DRUGS (1)
  1. VECTAVIR [Suspect]
     Active Substance: PENCICLOVIR
     Dosage: UNK
     Route: 065

REACTIONS (2)
  - Herpes virus infection [Unknown]
  - Condition aggravated [Unknown]
